FAERS Safety Report 9296083 (Version 1)
Quarter: 2013Q2

REPORT INFORMATION
  Report Type: Spontaneous
  Country: US (occurrence: US)
  Receive Date: 20130517
  Receipt Date: 20130517
  Transmission Date: 20140414
  Serious: No
  Sender: FDA-Public Use
  Company Number: US-TARO-2012P1060257

PATIENT
  Age: 79 Year
  Sex: Male
  Weight: 77.11 kg

DRUGS (1)
  1. NYSTATIN + TRIAMCINOLONE ACETONIDE OINTMENT [Suspect]
     Indication: RASH
     Route: 061
     Dates: start: 2011

REACTIONS (1)
  - Drug ineffective [Not Recovered/Not Resolved]
